FAERS Safety Report 7938237-7 (Version None)
Quarter: 2011Q4

REPORT INFORMATION
  Report Type: 
  Country: None (occurrence: None)
  Receive Date: 20111123
  Receipt Date: 20111118
  Transmission Date: 20120403
  Serious: Yes (Hospitalization, Other)
  Sender: FDA-Public Use
  Company Number: CHPA2011US016365

PATIENT
  Age: 81 Year
  Sex: Male

DRUGS (2)
  1. VIMPAT [Suspect]
     Dosage: 50 MG, BID
  2. VOLTAREN [Suspect]
     Indication: ARTHRITIS
     Dosage: 2 G, UNK
     Route: 061
     Dates: start: 20110101, end: 20110912

REACTIONS (9)
  - UNRESPONSIVE TO STIMULI [None]
  - MEMORY IMPAIRMENT [None]
  - DRUG DISPENSING ERROR [None]
  - ROAD TRAFFIC ACCIDENT [None]
  - WRONG TECHNIQUE IN DRUG USAGE PROCESS [None]
  - UNDERDOSE [None]
  - CONVULSION [None]
  - SYNCOPE [None]
  - DIZZINESS [None]
